FAERS Safety Report 5205175-2 (Version None)
Quarter: 2007Q1

REPORT INFORMATION
  Report Type: 
  Country: None (occurrence: None)
  Receive Date: 20070110
  Receipt Date: 20061017
  Transmission Date: 20070707
  Serious: Yes (Other)
  Sender: FDA-Public Use
  Company Number: US-PFIZER INC-2006127603

PATIENT
  Sex: Female
  Weight: 100.7 kg

DRUGS (2)
  1. LYRICA [Suspect]
     Indication: DIABETIC NEUROPATHY
  2. GABAPENTIN [Suspect]
     Indication: DIABETIC NEUROPATHY
     Dates: start: 20061003, end: 20061001

REACTIONS (3)
  - ASTHENIA [None]
  - GAIT DISTURBANCE [None]
  - WEIGHT DECREASED [None]
